FAERS Safety Report 4340172-0 (Version None)
Quarter: 2004Q1

REPORT INFORMATION
  Report Type: 
  Country: None (occurrence: None)
  Receive Date: 20040329
  Receipt Date: 20040114
  Transmission Date: 20041129
  Serious: No
  Sender: FDA-Public Use
  Company Number: 04P-163-0249347-00

PATIENT
  Age: 65 Year
  Sex: Female
  Weight: 53.5244 kg

DRUGS (9)
  1. HUMIRA [Suspect]
     Indication: RHEUMATOID ARTHRITIS
     Dosage: 40 ML, 1 IN 2 WK, SUBCUTANEOUS
     Route: 058
     Dates: start: 20031101
  2. HETHOTREXATE [Concomitant]
  3. DIOVAN [Concomitant]
  4. METOPROLOL [Concomitant]
  5. GERITOL [Concomitant]
  6. CENTRUM [Concomitant]
  7. VITAMIN B COMPLEX CAP [Concomitant]
  8. FISH OIL [Concomitant]
  9. MAGNESIUM [Concomitant]

REACTIONS (2)
  - COUGH [None]
  - DYSGEUSIA [None]
